FAERS Safety Report 8863021 (Version 1)
Quarter: 2012Q4

REPORT INFORMATION
  Report Type: 
  Country: IN (occurrence: IN)
  Receive Date: 20121026
  Receipt Date: 20121026
  Transmission Date: 20130627
  Serious: Yes (Hospitalization)
  Sender: FDA-Public Use
  Company Number: IN-BRISTOL-MYERS SQUIBB COMPANY-17040544

PATIENT
  Age: 33 Year
  Sex: Female

DRUGS (6)
  1. ARIPIPRAZOLE [Suspect]
     Indication: DEPRESSION
     Dosage: Initally 10 mg/d and then increased to 30mg/d
  2. ARIPIPRAZOLE [Interacting]
     Indication: PSYCHOTIC DISORDER
     Dosage: Initally 10 mg/d and then increased to 30mg/d
  3. ARIPIPRAZOLE [Interacting]
     Indication: SCHIZOAFFECTIVE DISORDER
     Dosage: Initally 10 mg/d and then increased to 30mg/d
  4. FLUOXETINE [Interacting]
     Indication: DEPRESSION
  5. FLUOXETINE [Interacting]
     Indication: PSYCHOTIC DISORDER
  6. FLUOXETINE [Interacting]
     Indication: SCHIZOAFFECTIVE DISORDER

REACTIONS (4)
  - Dystonia [Recovered/Resolved]
  - Akathisia [Recovered/Resolved]
  - Parkinsonism [Recovered/Resolved]
  - Drug interaction [Unknown]
